FAERS Safety Report 6812290-6 (Version None)
Quarter: 2010Q3

REPORT INFORMATION
  Report Type: 
  Country: None (occurrence: None)
  Receive Date: 20100701
  Receipt Date: 20100628
  Transmission Date: 20110219
  Serious: Yes (Death)
  Sender: FDA-Public Use
  Company Number: PHHY2010DE37839

PATIENT
  Sex: Male

DRUGS (2)
  1. LEPONEX [Suspect]
     Indication: DEPRESSION
     Dosage: APPROX. 60 TABLETS A 100 MG
     Route: 048
     Dates: start: 20060603
  2. LORAZEPAM [Suspect]
     Dosage: UUKNOWN AMOUNT
     Route: 048

REACTIONS (2)
  - COMPLETED SUICIDE [None]
  - INTENTIONAL OVERDOSE [None]
